FAERS Safety Report 20607525 (Version 1)
Quarter: 2022Q1

REPORT INFORMATION
  Report Type: Report from Study
  Country: IL (occurrence: IL)
  Receive Date: 20220317
  Receipt Date: 20220317
  Transmission Date: 20220423
  Serious: Yes (Other)
  Sender: FDA-Public Use
  Company Number: IL-ABBVIE-22K-082-4287263-00

PATIENT
  Sex: Female

DRUGS (1)
  1. HUMIRA [Suspect]
     Active Substance: ADALIMUMAB
     Indication: Psoriasis
     Route: 058
     Dates: start: 20220120

REACTIONS (9)
  - Mental disorder [Not Recovered/Not Resolved]
  - Suicidal ideation [Unknown]
  - Skin disorder [Not Recovered/Not Resolved]
  - Dandruff [Unknown]
  - Wrong technique in product usage process [Unknown]
  - Injection site extravasation [Unknown]
  - Hyperphagia [Unknown]
  - Therapeutic product effect incomplete [Not Recovered/Not Resolved]
  - Psoriasis [Unknown]

NARRATIVE: CASE EVENT DATE: 20220101
